FAERS Safety Report 8563979-2 (Version None)
Quarter: 2012Q3

REPORT INFORMATION
  Report Type: 
  Country: None (occurrence: None)
  Receive Date: 20120803
  Receipt Date: 20120731
  Transmission Date: 20120928
  Serious: Yes (Hospitalization, Other)
  Sender: FDA-Public Use
  Company Number: PHHO2011NL11251

PATIENT
  Sex: Female
  Weight: 46 kg

DRUGS (15)
  1. PROGRAF [Suspect]
     Indication: RENAL TRANSPLANT
     Dosage: 4 MG, BID
     Dates: start: 20110605, end: 20120728
  2. COTRIM [Concomitant]
  3. COTRIM [Concomitant]
     Dosage: 480 MG, QD
     Dates: start: 20111212
  4. PREDNISONE [Suspect]
     Dosage: 10 MG, UNK
     Dates: start: 20110410
  5. SELOKEEN [Concomitant]
     Indication: HYPERTENSION
     Dosage: UNK
     Dates: start: 20110410
  6. NEXIUM [Concomitant]
     Indication: PROPHYLAXIS
     Dosage: UNK
     Dates: start: 20110410
  7. MYCOPHENOLIC ACID [Suspect]
     Indication: RENAL TRANSPLANT
     Dosage: 360 MG, BID
     Dates: start: 20110605, end: 20120728
  8. CALCIUM CARBONATE [Concomitant]
     Indication: OSTEOPOROSIS
     Dosage: UNK
     Dates: start: 20110410
  9. PREDNISONE [Suspect]
     Dosage: UNK
     Dates: start: 20110605, end: 20120728
  10. ZANTAC [Concomitant]
  11. AMLODIPINE [Concomitant]
     Indication: HYPERTENSION
     Dosage: UNK
     Dates: start: 20110410
  12. LISINOPRIL [Concomitant]
     Indication: HYPERTENSION
     Dosage: 2.5 MG, UNK
  13. METOPROLOL TARTRATE [Concomitant]
     Indication: HYPERTENSION
     Dosage: UNK
     Dates: start: 20110410
  14. ALFACALCIDOL [Concomitant]
     Indication: OSTEOPOROSIS
     Dosage: UNK
     Dates: start: 20110410
  15. SIMULECT [Suspect]
     Indication: RENAL TRANSPLANT
     Dosage: 5 MG, BID
     Dates: start: 20110410

REACTIONS (3)
  - PYELONEPHRITIS [None]
  - UROSEPSIS [None]
  - UPPER RESPIRATORY TRACT INFECTION [None]
